FAERS Safety Report 18294268 (Version 1)
Quarter: 2020Q3

REPORT INFORMATION
  Report Type: Spontaneous
  Country: US (occurrence: US)
  Receive Date: 20200922
  Receipt Date: 20200922
  Transmission Date: 20201103
  Serious: Yes (Other)
  Sender: FDA-Public Use
  Company Number: None

PATIENT
  Age: 66 Year
  Sex: Female
  Weight: 64.8 kg

DRUGS (4)
  1. CLOTRIMAZOLE 10 MG TROCHE [Suspect]
     Active Substance: CLOTRIMAZOLE
     Indication: ORAL CANDIDIASIS
     Dosage: ?          OTHER FREQUENCY:5 TIMES A DAY;OTHER ROUTE:DISSOLVE IN MOUTH?
     Dates: start: 20200919, end: 20200921
  2. FLONASE [Concomitant]
     Active Substance: FLUTICASONE PROPIONATE
  3. SENSIMIST [Concomitant]
  4. PEPCID AC [Concomitant]
     Active Substance: FAMOTIDINE

REACTIONS (3)
  - Pruritus [None]
  - Rash [None]
  - Dyspnoea [None]

NARRATIVE: CASE EVENT DATE: 20200921
